FAERS Safety Report 8875954 (Version 2)
Quarter: 2012Q4

REPORT INFORMATION
  Report Type: 
  Country: DE (occurrence: DE)
  Receive Date: 20121023
  Receipt Date: 20121221
  Transmission Date: 20130627
  Serious: Yes (Congenital Anomaly)
  Sender: FDA-Public Use
  Company Number: DE-GLAXOSMITHKLINE-D0077472B

PATIENT

DRUGS (3)
  1. ATMADISC [Suspect]
     Indication: ASTHMA
     Dosage: 300MCG Twice per day
     Route: 064
     Dates: start: 20090623, end: 201209
  2. SINGULAIR [Concomitant]
     Indication: ASTHMA
     Dosage: 10MG Per day
     Route: 064
     Dates: start: 20090623, end: 201209
  3. EUTHYROX [Concomitant]
     Indication: HYPOTHYROIDISM
     Dosage: 75MCG Per day
     Route: 048
     Dates: start: 2005

REACTIONS (2)
  - Foetal malformation [Unknown]
  - Foetal exposure during pregnancy [Unknown]
